FAERS Safety Report 5163264-5 (Version None)
Quarter: 2006Q4

REPORT INFORMATION
  Report Type: 
  Country: None (occurrence: None)
  Receive Date: 20061124
  Receipt Date: 20061109
  Transmission Date: 20070319
  Serious: Yes (Death)
  Sender: FDA-Public Use
  Company Number: 2006138940

PATIENT
  Age: 41 Year

DRUGS (3)
  1. ELETRIPTAN (ELETRIPTAN) [Suspect]
  2. GABAPENTIN [Suspect]
  3. METAXALONE [Suspect]

REACTIONS (3)
  - CARDIAC ARREST [None]
  - COMPLETED SUICIDE [None]
  - RESPIRATORY ARREST [None]
